FAERS Safety Report 23108239 (Version 1)
Quarter: 2023Q4

REPORT INFORMATION
  Report Type: Spontaneous
  Country: US (occurrence: US)
  Receive Date: 20231026
  Receipt Date: 20231026
  Transmission Date: 20240109
  Serious: No
  Sender: FDA-Public Use
  Company Number: US-Ipsen Biopharmaceuticals, Inc.-2023-24279

PATIENT
  Age: 53 Year
  Sex: Female

DRUGS (4)
  1. DYSPORT [Suspect]
     Active Substance: ABOBOTULINUMTOXINA
     Indication: Skin wrinkling
     Dosage: 25 UNITS IN EACH CROWS FEET, 20 UNITS IN FOREHEAD AND 55 UNITS IN GLABELLAR
     Route: 065
     Dates: start: 20220510, end: 20220510
  2. DYSPORT [Suspect]
     Active Substance: ABOBOTULINUMTOXINA
     Indication: Skin wrinkling
     Dosage: 30 UNITS IN CROW^S FEET, 60 UNITS IN GLABELLAR AND 25 UNITS IN FOREHEAD
     Route: 065
     Dates: start: 20230306, end: 20230306
  3. DYSPORT [Suspect]
     Active Substance: ABOBOTULINUMTOXINA
     Indication: Skin wrinkling
     Dosage: 20 UNITS IN GLABELLAR
     Route: 065
     Dates: start: 20230321, end: 20230321
  4. DYSPORT [Suspect]
     Active Substance: ABOBOTULINUMTOXINA
     Indication: Off label use

REACTIONS (7)
  - Drug ineffective [Unknown]
  - Off label use [Unknown]
  - Product storage error [Unknown]
  - Drug ineffective [Unknown]
  - Off label use [Unknown]
  - Product storage error [Unknown]
  - Off label use [Unknown]

NARRATIVE: CASE EVENT DATE: 20220101
